FAERS Safety Report 9104136 (Version 2)
Quarter: 2013Q1

REPORT INFORMATION
  Report Type: Spontaneous
  Country: BR (occurrence: BR)
  Receive Date: 20130219
  Receipt Date: 20130227
  Transmission Date: 20140127
  Serious: Yes (Other)
  Sender: FDA-Public Use
  Company Number: PHHY2013BR015250

PATIENT
  Sex: Male
  Weight: 16 kg

DRUGS (2)
  1. RITALIN LA [Suspect]
     Indication: PSYCHOMOTOR HYPERACTIVITY
     Dosage: 1 DF, QD
     Dates: start: 201210
  2. RITALIN LA [Suspect]
     Dosage: 2 DF, QD
     Dates: end: 20121218

REACTIONS (2)
  - Developmental delay [Unknown]
  - Drug ineffective [Unknown]
